FAERS Safety Report 25521678 (Version 1)
Quarter: 2025Q3

REPORT INFORMATION
  Report Type: Spontaneous
  Country: US (occurrence: US)
  Receive Date: 20250706
  Receipt Date: 20250706
  Transmission Date: 20251021
  Serious: No
  Sender: UPSHER SMITH LABORATORIES
  Company Number: US-UPSHER-SMITH LABORATORIES, LLC-20250600902

PATIENT
  Age: 0 Year

DRUGS (2)
  1. VIGADRONE [Suspect]
     Active Substance: VIGABATRIN
     Indication: Infantile spasms
     Route: 048
     Dates: start: 20250521
  2. VIGADRONE [Suspect]
     Active Substance: VIGABATRIN
     Route: 048
     Dates: start: 20250608

REACTIONS (2)
  - Somnolence [Recovered/Resolved]
  - Accidental overdose [Unknown]

NARRATIVE: CASE EVENT DATE: 20250608
